FAERS Safety Report 8780564 (Version 1)
Quarter: 2012Q4

REPORT INFORMATION
  Report Type: Report from Study
  Country: DE (occurrence: DE)
  Receive Date: 20120913
  Receipt Date: 20120913
  Transmission Date: 20130627
  Serious: Yes (Hospitalization)
  Sender: FDA-Public Use
  Company Number: PHHO2012DE013156

PATIENT
  Sex: Female
  Weight: 44 kg

DRUGS (1)
  1. CGP 57148B [Suspect]
     Indication: ACUTE LYMPHOCYTIC LEUKAEMIA
     Route: 048

REACTIONS (6)
  - Histiocytosis haematophagic [Recovered/Resolved]
  - Hepatic failure [Recovered/Resolved]
  - Renal failure acute [Recovered/Resolved]
  - Neuropathy peripheral [Recovered/Resolved]
  - Ileus paralytic [Recovered/Resolved]
  - Histiocytosis haematophagic [None]
